FAERS Safety Report 20627920 (Version 1)
Quarter: 2022Q1

REPORT INFORMATION
  Report Type: Spontaneous
  Country: US (occurrence: None)
  Receive Date: 20220323
  Receipt Date: 20220323
  Transmission Date: 20220424
  Serious: Yes (Death)
  Sender: FDA-Public Use
  Company Number: None

PATIENT
  Age: 78 Year
  Sex: Male
  Weight: 139.5 kg

DRUGS (7)
  1. ELIQUIS [Suspect]
     Active Substance: APIXABAN
     Indication: Thrombosis
     Dosage: OTHER FREQUENCY : ONCE BEFORE DEATH;?
     Route: 048
     Dates: start: 20220222, end: 20220222
  2. DEXCON [Concomitant]
  3. INSULIN [Concomitant]
  4. HYDROCORTISONE [Concomitant]
     Active Substance: HYDROCORTISONE
  5. tamslosin [Concomitant]
  6. PAROXETINE [Concomitant]
     Active Substance: PAROXETINE
  7. ATORVASTATIN [Concomitant]
     Active Substance: ATORVASTATIN

REACTIONS (2)
  - Dyspnoea [None]
  - Seizure [None]

NARRATIVE: CASE EVENT DATE: 20220222
